FAERS Safety Report 8989375 (Version 3)
Quarter: 2018Q1

REPORT INFORMATION
  Report Type: Report from Study
  Country: FR (occurrence: FR)
  Receive Date: 20121227
  Receipt Date: 20180315
  Transmission Date: 20180509
  Serious: Yes (Hospitalization, Other)
  Sender: FDA-Public Use
  Company Number: FR-GILEAD-2012-0066932

PATIENT
  Age: 44 Year
  Sex: Male
  Weight: 64 kg

DRUGS (18)
  1. ISENTRESS [Suspect]
     Active Substance: RALTEGRAVIR POTASSIUM
     Indication: HIV INFECTION
     Dosage: 400 MG, BID
     Route: 065
     Dates: start: 20120713, end: 20120717
  2. IMODIUM [Concomitant]
     Active Substance: LOPERAMIDE HYDROCHLORIDE
     Dosage: UNK, PRN
     Dates: start: 20120711, end: 20120713
  3. ZELITREX [Concomitant]
     Active Substance: VALACYCLOVIR HYDROCHLORIDE
     Indication: APHTHOUS ULCER
  4. CELSENTRI [Suspect]
     Active Substance: MARAVIROC
     Dosage: UNK
     Route: 065
     Dates: start: 20120713, end: 20120717
  5. REYATAZ [Suspect]
     Active Substance: ATAZANAVIR SULFATE
     Indication: HIV INFECTION
     Dosage: 300 MG, QD
     Route: 065
     Dates: start: 20120705, end: 20120707
  6. PENTACARINAT [Suspect]
     Active Substance: PENTAMIDINE ISETHIONATE
     Indication: PRODUCT USED FOR UNKNOWN INDICATION
     Dosage: UNK
     Route: 065
     Dates: start: 20120623, end: 20120717
  7. METRONIDAZOLE. [Concomitant]
     Active Substance: METRONIDAZOLE
     Indication: GIARDIASIS
  8. EMTRICITABINE/TENOFOVIR DISOPROXIL FUMARATE [Suspect]
     Active Substance: EMTRICITABINE\TENOFOVIR DISOPROXIL FUMARATE
     Indication: HIV INFECTION
     Dosage: 1 DF, QD
     Route: 065
     Dates: start: 20120705, end: 20120710
  9. PRIMPERAN [Concomitant]
     Active Substance: METOCLOPRAMIDE HYDROCHLORIDE
     Dosage: UNK, PRN
     Dates: start: 20120711, end: 20120713
  10. MALOCIDE                           /00112501/ [Suspect]
     Active Substance: PYRIMETHAMINE
     Indication: PROPHYLAXIS
     Dosage: 100 MG, QD
     Route: 065
     Dates: start: 20120705, end: 20120717
  11. REYATAZ [Suspect]
     Active Substance: ATAZANAVIR SULFATE
     Dosage: 300 MG, QD
     Route: 065
     Dates: start: 20120705, end: 20120709
  12. EMTRICITABINE/TENOFOVIR DISOPROXIL FUMARATE [Suspect]
     Active Substance: EMTRICITABINE\TENOFOVIR DISOPROXIL FUMARATE
     Dosage: 2 DF, QD
     Route: 065
     Dates: start: 20120713, end: 20120717
  13. NORVIR [Suspect]
     Active Substance: RITONAVIR
     Dosage: 100 MG, QD
     Route: 065
     Dates: start: 20120705, end: 20120709
  14. LEDERFOLINE [Suspect]
     Active Substance: LEUCOVORIN CALCIUM
     Indication: PRODUCT USED FOR UNKNOWN INDICATION
     Dosage: UNK
     Route: 065
     Dates: start: 20120705
  15. NORVIR [Suspect]
     Active Substance: RITONAVIR
     Indication: HIV INFECTION
     Dosage: 100 MG, QD
     Route: 065
     Dates: start: 20120705, end: 20120707
  16. CELSENTRI [Suspect]
     Active Substance: MARAVIROC
     Indication: HIV INFECTION
     Dosage: 150 UNK, BID
     Route: 065
     Dates: start: 20120705, end: 20120707
  17. PENTASA [Concomitant]
     Active Substance: MESALAMINE
     Indication: COLITIS ULCERATIVE
     Dosage: 2 G, BID
  18. FUNGIZONE [Concomitant]
     Active Substance: AMPHOTERICIN B
     Indication: APHTHOUS ULCER

REACTIONS (12)
  - Pancytopenia [Recovering/Resolving]
  - Nausea [Recovered/Resolved]
  - Rash generalised [Recovering/Resolving]
  - Diarrhoea [Recovered/Resolved]
  - Fatigue [Unknown]
  - Jaundice [Recovered/Resolved]
  - Seborrhoeic dermatitis [Unknown]
  - Enanthema [Recovering/Resolving]
  - Toxic skin eruption [Unknown]
  - Pruritus [Recovering/Resolving]
  - Skin exfoliation [Unknown]
  - Hyperbilirubinaemia [Unknown]

NARRATIVE: CASE EVENT DATE: 20120707
